FAERS Safety Report 10170211 (Version 2)
Quarter: 2014Q2

REPORT INFORMATION
  Report Type: Spontaneous
  Country: US (occurrence: US)
  Receive Date: 20140513
  Receipt Date: 20140603
  Transmission Date: 20141212
  Serious: No
  Sender: FDA-Public Use
  Company Number: US-PFIZER INC-2014129585

PATIENT
  Age: 90 Year
  Sex: Female
  Weight: 74.83 kg

DRUGS (3)
  1. PREMARIN [Suspect]
     Indication: VAGINAL DISORDER
     Dosage: 0.5 G, 2X/WEEK
     Route: 067
  2. PREMARIN [Suspect]
     Dosage: 0.5 G, ALTERNATE DAY
  3. PREMARIN [Suspect]

REACTIONS (2)
  - Vulvovaginal pain [Unknown]
  - Vulvovaginal burning sensation [Unknown]
